FAERS Safety Report 7715230-0 (Version None)
Quarter: 2011Q3

REPORT INFORMATION
  Report Type: 
  Country: None (occurrence: None)
  Receive Date: 20110829
  Receipt Date: 20110824
  Transmission Date: 20111222
  Serious: Yes (Life-Threatening)
  Sender: FDA-Public Use
  Company Number: PHHY2011DE75734

PATIENT
  Age: 54 Year
  Sex: Male
  Weight: 83 kg

DRUGS (3)
  1. VOLTAREN [Suspect]
     Dosage: 1 TABLET PER DAY
     Route: 048
     Dates: start: 20110819, end: 20110820
  2. ATACAND [Concomitant]
     Indication: HYPERTENSION
     Dosage: 4 MG, UNK
  3. VOLTAREN [Suspect]
     Indication: BACK PAIN
     Dosage: PRN (USUALLY 3 TO 4 TIMES DURING A YEAR)
     Route: 048

REACTIONS (1)
  - BLOOD TRIGLYCERIDES INCREASED [None]
